FAERS Safety Report 8963533 (Version 1)
Quarter: 2012Q4

REPORT INFORMATION
  Report Type: 
  Country: DE (occurrence: DE)
  Receive Date: 20121214
  Receipt Date: 20121214
  Transmission Date: 20130627
  Serious: Yes (Hospitalization)
  Sender: FDA-Public Use
  Company Number: DE-PFIZER INC-2012313780

PATIENT
  Age: 27 Year
  Sex: Male
  Weight: 55 kg

DRUGS (5)
  1. GENOTROPIN [Suspect]
     Indication: GROWTH HORMONE DEFICIENCY
     Dosage: 0.2 mg, 1x/day,7 injections/week
     Route: 058
     Dates: start: 20111001
  2. HYDROCORTISONE [Concomitant]
     Indication: ACTH DECREASED
     Dosage: UNK
     Dates: start: 1985
  3. L-THYROXIN [Concomitant]
     Indication: TSH DECREASED
     Dosage: UNK
     Dates: start: 1993
  4. NEBIDO [Concomitant]
     Indication: LUTEINIZING HORMONE DEFICIENCY
     Dosage: UNK
     Dates: start: 1999
  5. NEBIDO [Concomitant]
     Indication: FOLLICLE-STIMULATING HORMONE DEFICIENCY

REACTIONS (1)
  - Hernia [Unknown]
